FAERS Safety Report 24561960 (Version 6)
Quarter: 2025Q1

REPORT INFORMATION
  Report Type: Spontaneous
  Country: JP (occurrence: JP)
  Receive Date: 20241029
  Receipt Date: 20250321
  Transmission Date: 20250409
  Serious: Yes (Death, Other)
  Sender: GENMAB
  Company Number: JP-GENMAB-2024-02073AA

PATIENT
  Age: 72 Year
  Sex: Male

DRUGS (8)
  1. EPKINLY [Suspect]
     Active Substance: EPCORITAMAB-BYSP
     Indication: Diffuse large B-cell lymphoma refractory
     Route: 058
     Dates: start: 20240529, end: 20240529
  2. EPKINLY [Suspect]
     Active Substance: EPCORITAMAB-BYSP
     Route: 058
     Dates: start: 2024, end: 2024
  3. EPKINLY [Suspect]
     Active Substance: EPCORITAMAB-BYSP
     Route: 058
     Dates: start: 20240612
  4. DECADRON [Concomitant]
     Active Substance: DEXAMETHASONE
     Indication: Prophylaxis
     Dates: start: 20240529, end: 20240615
  5. DIPHENHYDRAMINE [Concomitant]
     Active Substance: DIPHENHYDRAMINE
     Indication: Prophylaxis
     Dates: start: 20240529, end: 20240612
  6. CALONAL [Concomitant]
     Active Substance: ACETAMINOPHEN
     Indication: Prophylaxis
     Dates: start: 20240529, end: 20240612
  7. CALONAL [Concomitant]
     Active Substance: ACETAMINOPHEN
     Indication: Cytokine release syndrome
     Dates: start: 20240613, end: 20240613
  8. SULFAMETHOXAZOLE\TRIMETHOPRIM [Concomitant]
     Active Substance: SULFAMETHOXAZOLE\TRIMETHOPRIM
     Indication: Prophylaxis

REACTIONS (11)
  - Hypogammaglobulinaemia [Unknown]
  - Cytomegalovirus chorioretinitis [Recovered/Resolved]
  - Hypokalaemia [Unknown]
  - Cytokine release syndrome [Recovered/Resolved]
  - Diffuse large B-cell lymphoma [Fatal]
  - Hypoalbuminaemia [Unknown]
  - Malaise [Unknown]
  - Alanine aminotransferase increased [Unknown]
  - Aspartate aminotransferase increased [Unknown]
  - Hyponatraemia [Unknown]
  - Decreased appetite [Unknown]

NARRATIVE: CASE EVENT DATE: 20240101
